FAERS Safety Report 4855160-5 (Version None)
Quarter: 2005Q4

REPORT INFORMATION
  Report Type: 
  Country: None (occurrence: None)
  Receive Date: 20051215
  Receipt Date: 20030605
  Transmission Date: 20060501
  Serious: Yes (Hospitalization, Other)
  Sender: FDA-Public Use
  Company Number: US-MERCK-0306USA00941

PATIENT
  Age: 49 Year
  Sex: Female
  Weight: 130 kg

DRUGS (6)
  1. VIOXX [Suspect]
     Indication: ARTHRALGIA
     Route: 048
     Dates: start: 19990716
  2. VIOXX [Suspect]
     Route: 048
     Dates: start: 20000112
  3. VIOXX [Suspect]
     Route: 048
     Dates: start: 20001023
  4. VIOXX [Suspect]
     Route: 048
     Dates: start: 19990716
  5. VIOXX [Suspect]
     Route: 048
     Dates: start: 20000112
  6. VIOXX [Suspect]
     Route: 048
     Dates: start: 20001023

REACTIONS (17)
  - ADVERSE EVENT [None]
  - ANGINA PECTORIS [None]
  - ARTHRITIS [None]
  - BLOOD PRESSURE INCREASED [None]
  - CARDIAC FAILURE CONGESTIVE [None]
  - CEREBROVASCULAR ACCIDENT [None]
  - CONVULSION [None]
  - FALL [None]
  - HEMIPLEGIA [None]
  - HOT FLUSH [None]
  - NASOPHARYNGITIS [None]
  - NERVOUSNESS [None]
  - PAIN IN EXTREMITY [None]
  - PANIC DISORDER [None]
  - RHINITIS ALLERGIC [None]
  - SLEEP DISORDER [None]
  - UPPER RESPIRATORY TRACT INFECTION [None]
